FAERS Safety Report 10253552 (Version 1)
Quarter: 2014Q2

REPORT INFORMATION
  Report Type: Spontaneous
  Country: US (occurrence: US)
  Receive Date: 20140623
  Receipt Date: 20140623
  Transmission Date: 20141212
  Serious: Yes (Hospitalization, Other)
  Sender: FDA-Public Use
  Company Number: US-ZOGENIX, INC.-2011ZX000500

PATIENT
  Age: 54 Year
  Sex: Female
  Weight: 95.34 kg

DRUGS (15)
  1. SUMAVEL DOSEPRO [Suspect]
     Indication: MIGRAINE
  2. LEVOTHYROXINE [Concomitant]
     Indication: THYROID DISORDER
     Route: 048
  3. RELPAX [Concomitant]
     Indication: MIGRAINE
     Route: 048
  4. PROAIR HFA [Concomitant]
     Indication: PRODUCT USED FOR UNKNOWN INDICATION
     Dosage: DRUG ROUTE: INHALATION
  5. PROPRANOLOL [Concomitant]
     Indication: PRODUCT USED FOR UNKNOWN INDICATION
     Route: 048
  6. TOPAMAX [Concomitant]
     Indication: MIGRAINE
     Route: 048
  7. OMEPRAZOLE [Concomitant]
     Indication: PRODUCT USED FOR UNKNOWN INDICATION
     Route: 048
  8. ASPIRIN [Concomitant]
     Indication: PRODUCT USED FOR UNKNOWN INDICATION
     Route: 048
  9. PROMETHAZINE [Concomitant]
     Indication: NAUSEA
     Route: 048
  10. FLUOXETINE [Concomitant]
     Indication: ANXIETY
     Route: 048
  11. HYDROCODONE [Concomitant]
     Indication: ANXIETY
  12. LISINOPRIL [Concomitant]
     Indication: BLOOD PRESSURE
  13. SOMA [Concomitant]
     Indication: PAIN
     Route: 048
  14. ZOLPIDEM [Concomitant]
     Indication: SLEEP DISORDER
     Route: 048
  15. ALPRAZOLAM [Concomitant]
     Indication: PRODUCT USED FOR UNKNOWN INDICATION

REACTIONS (6)
  - Hypertension [Recovered/Resolved]
  - Drug effect incomplete [Recovered/Resolved]
  - Dizziness [Recovered/Resolved]
  - Injection site pain [Recovered/Resolved]
  - Injection site urticaria [Recovered/Resolved]
  - Injection site pruritus [Recovered/Resolved]
